FAERS Safety Report 9923200 (Version 1)
Quarter: 2014Q1

REPORT INFORMATION
  Report Type: Spontaneous
  Country: US (occurrence: US)
  Receive Date: 20140225
  Receipt Date: 20140225
  Transmission Date: 20141002
  Serious: No
  Sender: FDA-Public Use
  Company Number: US-AMGEN-USASP2013071452

PATIENT
  Age: 50 Year
  Sex: Female

DRUGS (1)
  1. ENBREL [Suspect]
     Indication: RHEUMATOID ARTHRITIS
     Dosage: 50 MG, QWK
     Route: 065
     Dates: start: 20130809, end: 20131005

REACTIONS (4)
  - Headache [Not Recovered/Not Resolved]
  - Neck pain [Recovered/Resolved]
  - Pharyngitis streptococcal [Recovered/Resolved]
  - Lymphadenopathy [Recovered/Resolved]
